FAERS Safety Report 20746559 (Version 1)
Quarter: 2022Q2

REPORT INFORMATION
  Report Type: Other
  Country: None (occurrence: CA)
  Receive Date: 20220425
  Receipt Date: 20220425
  Transmission Date: 20220720
  Serious: Yes (Other)
  Sender: FDA-Public Use
  Company Number: CA-Jacobus Pharmaceutical Company, Inc.-2128132

PATIENT
  Sex: Female

DRUGS (5)
  1. DAPSONE [Suspect]
     Active Substance: DAPSONE
  2. IMMUNE GLOBULIN NOS [Suspect]
     Active Substance: IMMUNE GLOBULIN NOS
  3. NABILONE [Suspect]
     Active Substance: NABILONE
  4. PENICILLIN V POTASIUM [Suspect]
     Active Substance: PENICILLIN V POTASSIUM
  5. RITUXAN [Suspect]
     Active Substance: RITUXIMAB

REACTIONS (2)
  - Drug hypersensitivity [Unknown]
  - Meningitis aseptic [Unknown]
